FAERS Safety Report 16741654 (Version 1)
Quarter: 2019Q3

REPORT INFORMATION
  Report Type: Spontaneous
  Country: GB (occurrence: GB)
  Receive Date: 20190826
  Receipt Date: 20190826
  Transmission Date: 20191005
  Serious: Yes (Other)
  Sender: FDA-Public Use
  Company Number: GB-UCBSA-2019035171

PATIENT
  Age: 18 Year
  Sex: Female
  Weight: 71.66 kg

DRUGS (5)
  1. SALBUTAMOL [Concomitant]
     Active Substance: ALBUTEROL
     Indication: PRODUCT USED FOR UNKNOWN INDICATION
     Route: 055
  2. RELVAR ELLIPTA [FLUTICASONE FUROATE;VILANTEROL TRIFENATATE] [Concomitant]
     Active Substance: FLUTICASONE FUROATE\VILANTEROL TRIFENATATE
     Indication: PRODUCT USED FOR UNKNOWN INDICATION
     Route: 055
  3. COCODAMOL [Concomitant]
     Active Substance: ACETAMINOPHEN\CODEINE PHOSPHATE
     Indication: PRODUCT USED FOR UNKNOWN INDICATION
     Dosage: 8/500
  4. BRIVIACT [Suspect]
     Active Substance: BRIVARACETAM
     Indication: EPILEPSY
     Dosage: 150 MG
     Route: 048
     Dates: start: 20181220
  5. SPIRIVA [Concomitant]
     Active Substance: TIOTROPIUM BROMIDE MONOHYDRATE
     Indication: PRODUCT USED FOR UNKNOWN INDICATION
     Route: 055

REACTIONS (4)
  - Vision blurred [Unknown]
  - Memory impairment [Unknown]
  - Motor dysfunction [Unknown]
  - Peroneal nerve palsy [Unknown]

NARRATIVE: CASE EVENT DATE: 20190301
